FAERS Safety Report 8583263 (Version 2)
Quarter: 2012Q4

REPORT INFORMATION
  Report Type: 
  Country: US (occurrence: US)
  Receive Date: 20120529
  Receipt Date: 20121015
  Transmission Date: 20130627
  Serious: Yes (Other)
  Sender: FDA-Public Use
  Company Number: US-ELI_LILLY_AND_COMPANY-US201205007748

PATIENT
  Age: 13 Year
  Sex: Female
  Weight: 85.26 kg

DRUGS (9)
  1. STRATTERA [Suspect]
     Indication: ATTENTION DEFICIT/HYPERACTIVITY DISORDER
     Dosage: 25 mg, qd
     Dates: start: 20111227
  2. STRATTERA [Suspect]
     Dosage: 60 mg, qd
     Dates: start: 20120222
  3. STRATTERA [Suspect]
     Dosage: 80 mg, UNK
     Dates: end: 20120403
  4. ADDERALL [Concomitant]
     Indication: ATTENTION DEFICIT/HYPERACTIVITY DISORDER
     Dosage: 20 mg, UNK
  5. ADDERALL [Concomitant]
     Dosage: 25 mg, UNK
     Dates: start: 20120403
  6. ADDERALL [Concomitant]
     Dosage: 55 mg, UNK
  7. ADDERALL [Concomitant]
     Dosage: 35 mg, UNK
  8. ADDERALL [Concomitant]
     Dosage: 10 mg, UNK
     Dates: start: 20120803
  9. ADDERALL [Concomitant]
     Dosage: 25 mg, UNK
     Dates: start: 20120403

REACTIONS (2)
  - Aspartate aminotransferase increased [Recovered/Resolved]
  - Alanine aminotransferase increased [Recovered/Resolved]
